FAERS Safety Report 6436732-3 (Version None)
Quarter: 2009Q4

REPORT INFORMATION
  Report Type: 
  Country: None (occurrence: None)
  Receive Date: 20091028
  Receipt Date: 20091016
  Transmission Date: 20100525
  Serious: Yes (Death, Life-Threatening, Hospitalization, Disabling)
  Sender: FDA-Public Use
  Company Number: WSDF_00597

PATIENT
  Sex: Female
  Weight: 56.6996 kg

DRUGS (1)
  1. WINRHO SDF LIQUID [Suspect]
     Indication: IDIOPATHIC THROMBOCYTOPENIC PURPURA
     Dosage: 70.55 UG/G TOTAL INTRAVENOUS (NOT OTHERWISE SPECIFIED)
     Route: 042
     Dates: start: 20061108, end: 20061108

REACTIONS (30)
  - ASTHENIA [None]
  - CARDIAC FAILURE CONGESTIVE [None]
  - CARDIO-RESPIRATORY ARREST [None]
  - CEREBRAL ATROPHY [None]
  - CEREBRAL HAEMORRHAGE [None]
  - CHEST PAIN [None]
  - CHILLS [None]
  - CONFUSIONAL STATE [None]
  - ECCHYMOSIS [None]
  - ELECTROENCEPHALOGRAM ABNORMAL [None]
  - HAEMOLYTIC ANAEMIA [None]
  - HEPATIC CYST [None]
  - LEUKOCYTOSIS [None]
  - LICHEN SCLEROSUS [None]
  - MARROW HYPERPLASIA [None]
  - MENINGITIS [None]
  - MENTAL STATUS CHANGES [None]
  - METABOLIC ENCEPHALOPATHY [None]
  - MYOCARDIAL INFARCTION [None]
  - OVERDOSE [None]
  - PAIN IN EXTREMITY [None]
  - PNEUMONIA ASPIRATION [None]
  - SINUS TACHYCARDIA [None]
  - SOMNOLENCE [None]
  - STATUS EPILEPTICUS [None]
  - THROMBOCYTOPENIA [None]
  - TRANSFUSION REACTION [None]
  - TROPONIN INCREASED [None]
  - URINARY TRACT INFECTION [None]
  - VAGINAL HAEMORRHAGE [None]
